FAERS Safety Report 21207753 (Version 1)
Quarter: 2022Q3

REPORT INFORMATION
  Report Type: Spontaneous
  Country: US (occurrence: None)
  Receive Date: 20220811
  Receipt Date: 20220811
  Transmission Date: 20221026
  Serious: Yes (Hospitalization)
  Sender: FDA-Public Use
  Company Number: None

PATIENT
  Sex: Female

DRUGS (2)
  1. TREMFYA [Suspect]
     Active Substance: GUSELKUMAB
     Indication: Rheumatoid arthritis
     Dosage: INJECT 1 SYRINGE UNDER THE SKIN (SUBCUTANEOUS INJECTION) EVERY 8 WEEKS?
     Route: 058
     Dates: start: 20180921
  2. TREMFYA [Suspect]
     Active Substance: GUSELKUMAB
     Dosage: OTHER QUANTITY : 1 SYRINGE;?OTHER FREQUENCY : EVERY 8 WEEKS;?
     Route: 058

REACTIONS (1)
  - Hysterectomy [None]
